FAERS Safety Report 24459847 (Version 1)
Quarter: 2024Q4

REPORT INFORMATION
  Report Type: Spontaneous
  Country: FR (occurrence: FR)
  Receive Date: 20241018
  Receipt Date: 20241018
  Transmission Date: 20250114
  Serious: No
  Sender: ROCHE
  Company Number: None

PATIENT
  Age: 63 Year
  Sex: Female

DRUGS (8)
  1. RITUXIMAB [Suspect]
     Active Substance: RITUXIMAB
     Indication: Chronic lymphocytic leukaemia
     Dosage: C6
     Route: 065
     Dates: start: 20240308, end: 20240308
  2. RITUXIMAB [Suspect]
     Active Substance: RITUXIMAB
     Dosage: C1
     Route: 065
     Dates: start: 20231212, end: 20240308
  3. RITUXIMAB [Suspect]
     Active Substance: RITUXIMAB
     Dosage: C2
     Route: 065
     Dates: start: 20231219, end: 20240308
  4. RITUXIMAB [Suspect]
     Active Substance: RITUXIMAB
     Dosage: C4
     Route: 065
     Dates: start: 20240112, end: 20240308
  5. RITUXIMAB [Suspect]
     Active Substance: RITUXIMAB
     Dosage: C5
     Route: 065
     Dates: start: 20240209, end: 20240308
  6. RITUXIMAB [Suspect]
     Active Substance: RITUXIMAB
     Dosage: C3
     Route: 065
     Dates: start: 20231229, end: 20240308
  7. VENETOCLAX [Suspect]
     Active Substance: VENETOCLAX
     Indication: Chronic lymphocytic leukaemia
     Dosage: AUG PROGR 20MG/J PDT 7 J PUIS 50MG/J PDT 7 J PUIS 100MG/J PDT 7 J PUIS 200MG/J PDT 7 J PUIS 400MG/J
     Route: 065
     Dates: start: 20231026
  8. FILGRASTIM [Suspect]
     Active Substance: FILGRASTIM
     Indication: Bone marrow failure
     Dosage: 30 MUI 3X/SEM PUIS 2X/SEM
     Route: 065
     Dates: start: 20231101, end: 20240415

REACTIONS (1)
  - Diffuse alopecia [Not Recovered/Not Resolved]

NARRATIVE: CASE EVENT DATE: 20240315
